FAERS Safety Report 21123523 (Version 1)
Quarter: 2022Q3

REPORT INFORMATION
  Report Type: Spontaneous
  Country: US (occurrence: US)
  Receive Date: 20220724
  Receipt Date: 20220724
  Transmission Date: 20221027
  Serious: No
  Sender: FDA-Public Use
  Company Number: US-BEIGENE USA INC-BGN-2022-007682

PATIENT

DRUGS (1)
  1. BRUKINSA [Suspect]
     Active Substance: ZANUBRUTINIB
     Indication: Extranodal marginal zone B-cell lymphoma (MALT type)
     Dosage: UNK
     Route: 048

REACTIONS (2)
  - Arthralgia [Unknown]
  - Product complaint [Unknown]
